FAERS Safety Report 25351906 (Version 1)
Quarter: 2025Q2

REPORT INFORMATION
  Report Type: Spontaneous
  Country: US (occurrence: None)
  Receive Date: 20250522
  Receipt Date: 20250522
  Transmission Date: 20250717
  Serious: Yes (Disabling)
  Sender: FDA-CTU
  Company Number: None

PATIENT
  Age: 76 Year
  Sex: Female
  Weight: 74.25 kg

DRUGS (11)
  1. AMLODIPINE BESYLATE [Suspect]
     Active Substance: AMLODIPINE BESYLATE
     Indication: Hypertension
     Dosage: FREQUENCY : DAILY;?
     Route: 048
     Dates: start: 20250312, end: 20250422
  2. SYNTHROID [Concomitant]
     Active Substance: LEVOTHYROXINE SODIUM
  3. CLONIDINE [Concomitant]
     Active Substance: CLONIDINE
  4. VALTREX [Concomitant]
     Active Substance: VALACYCLOVIR HYDROCHLORIDE
  5. Meclazine [Concomitant]
  6. METROGEL [Concomitant]
     Active Substance: METRONIDAZOLE
  7. TYLENOL [Concomitant]
     Active Substance: ACETAMINOPHEN
  8. plant calcium [Concomitant]
  9. VITAMIN D [Concomitant]
     Active Substance: VITAMIN D NOS
  10. MAGNESIUM [Concomitant]
     Active Substance: MAGNESIUM
  11. STOOL SOFTENER (DOCUSATE) [Concomitant]
     Active Substance: DOCUSATE

REACTIONS (9)
  - Pain in extremity [None]
  - Back pain [None]
  - Muscle spasms [None]
  - Pain in extremity [None]
  - Balance disorder [None]
  - Clumsiness [None]
  - Fall [None]
  - Lumbar vertebral fracture [None]
  - Neuralgia [None]

NARRATIVE: CASE EVENT DATE: 20250315
